FAERS Safety Report 18312497 (Version 2)
Quarter: 2020Q4

REPORT INFORMATION
  Report Type: Spontaneous
  Country: NL (occurrence: NL)
  Receive Date: 20200925
  Receipt Date: 20201019
  Transmission Date: 20210113
  Serious: Yes (Other)
  Sender: FDA-Public Use
  Company Number: NL-MYLANLABS-2020M1081844

PATIENT
  Age: 84 Year
  Sex: Female

DRUGS (2)
  1. FENTANYL. [Suspect]
     Active Substance: FENTANYL
     Indication: PRODUCT USED FOR UNKNOWN INDICATION
     Dosage: FENTANYL PATCH STICKING UNDER HER DENTAL PROSTHESIS EARLIER APPLIED ON BACK
     Route: 050
  2. FENTANYL. [Suspect]
     Active Substance: FENTANYL
     Dosage: FENTANYL PATCH STICKING UNDER HER DENTAL PROSTHESIS EARLIER APPLIED ON BACK
     Route: 048

REACTIONS (3)
  - Intentional product misuse [Unknown]
  - Toxicity to various agents [Unknown]
  - Loss of consciousness [Unknown]
